FAERS Safety Report 7149391-1 (Version None)
Quarter: 2010Q4

REPORT INFORMATION
  Report Type: 
  Country: None (occurrence: None)
  Receive Date: 20101126
  Receipt Date: 20101121
  Transmission Date: 20110411
  Serious: Yes (Hospitalization)
  Sender: FDA-Public Use
  Company Number: 2010AC000574

PATIENT
  Age: 65 Year
  Sex: Female

DRUGS (20)
  1. DIGOXIN [Suspect]
     Dosage: 0.25 MG; QD; PO
     Route: 048
     Dates: start: 20020101, end: 20080301
  2. DIGOXIN [Suspect]
     Dosage: 0.125 MG; QD; PO
     Route: 048
     Dates: start: 20080308
  3. VERAPAMIL [Concomitant]
  4. LASIX [Concomitant]
  5. IMDUR [Concomitant]
  6. PROTAMINE SULFATE [Concomitant]
  7. BUSPAR [Concomitant]
  8. SYNTHROID [Concomitant]
  9. POTASSIUM [Concomitant]
  10. ALBUTEROL [Concomitant]
  11. SPIRIVA [Concomitant]
  12. OXYGEN [Concomitant]
  13. ASPIRIN [Concomitant]
  14. PEPCID [Concomitant]
  15. COUMADIN [Concomitant]
  16. CITALOPRAM [Concomitant]
  17. NITROGLYCERIN [Concomitant]
  18. PROTONIX [Concomitant]
  19. CELEXA [Concomitant]
  20. ASCORBIC ACID [Concomitant]

REACTIONS (29)
  - ANXIETY [None]
  - AORTIC VALVE SCLEROSIS [None]
  - ASTHENIA [None]
  - CHEST PAIN [None]
  - CHOLELITHIASIS [None]
  - DECREASED APPETITE [None]
  - DEHYDRATION [None]
  - DEPRESSION [None]
  - DILATATION ATRIAL [None]
  - DIZZINESS POSTURAL [None]
  - DYSPNOEA [None]
  - FATIGUE [None]
  - HEART RATE DECREASED [None]
  - HYPERTROPHY [None]
  - LEFT VENTRICULAR HYPERTROPHY [None]
  - LETHARGY [None]
  - MITRAL VALVE INCOMPETENCE [None]
  - NAUSEA [None]
  - ORTHOPNOEA [None]
  - PAIN IN EXTREMITY [None]
  - PALPITATIONS [None]
  - PERICARDIAL EFFUSION [None]
  - PRESYNCOPE [None]
  - PULMONARY VALVE INCOMPETENCE [None]
  - RENAL IMPAIRMENT [None]
  - SINUS TACHYCARDIA [None]
  - THERAPEUTIC AGENT TOXICITY [None]
  - TRICUSPID VALVE INCOMPETENCE [None]
  - VOMITING [None]
